FAERS Safety Report 11632169 (Version 2)
Quarter: 2015Q4

REPORT INFORMATION
  Report Type: Report from Study
  Country: US (occurrence: US)
  Receive Date: 20151015
  Receipt Date: 20151020
  Transmission Date: 20160304
  Serious: Yes (Death)
  Sender: FDA-Public Use
  Company Number: US-ROCHE-1519386

PATIENT
  Sex: Female

DRUGS (6)
  1. NEURONTIN [Concomitant]
     Active Substance: GABAPENTIN
     Route: 048
  2. PANTOPRAZOLE [Concomitant]
     Active Substance: PANTOPRAZOLE SODIUM
     Route: 048
  3. LOVENOX [Concomitant]
     Active Substance: ENOXAPARIN SODIUM
     Route: 058
  4. XELODA [Suspect]
     Active Substance: CAPECITABINE
     Indication: METASTASES TO LIVER
     Dosage: FOR 1 WEEK AND OFF FOR ANOTHER WEEK.
     Route: 048
  5. MORPHINE [Concomitant]
     Active Substance: MORPHINE
     Route: 058
  6. NAPROXEN. [Concomitant]
     Active Substance: NAPROXEN
     Route: 048

REACTIONS (1)
  - Breast cancer metastatic [Fatal]
